FAERS Safety Report 15408247 (Version 1)
Quarter: 2018Q3

REPORT INFORMATION
  Report Type: Spontaneous
  Country: US (occurrence: US)
  Receive Date: 20180920
  Receipt Date: 20180920
  Transmission Date: 20181010
  Serious: No
  Sender: FDA-Public Use
  Company Number: US-PERRIGO-17US032004

PATIENT
  Age: 3 Month
  Sex: Female
  Weight: 5.9 kg

DRUGS (1)
  1. LEVONORGESTREL. [Suspect]
     Active Substance: LEVONORGESTREL
     Indication: EXPOSURE VIA BREAST MILK
     Dosage: UNKNOWN, UNKNOWN
     Route: 048
     Dates: start: 20171227, end: 20171227

REACTIONS (1)
  - Exposure via breast milk [Recovered/Resolved]

NARRATIVE: CASE EVENT DATE: 20171227
